FAERS Safety Report 4294754-5 (Version None)
Quarter: 2004Q1

REPORT INFORMATION
  Report Type: 
  Country: None (occurrence: None)
  Receive Date: 20040211
  Receipt Date: 20031204
  Transmission Date: 20041129
  Serious: Yes (Death)
  Sender: FDA-Public Use
  Company Number: JP_0305000963

PATIENT
  Age: 67 Year
  Sex: Male

DRUGS (8)
  1. GEMZAR [Suspect]
     Indication: NON-SMALL CELL LUNG CANCER
     Dosage: 1500 MG/OTHER
     Dates: start: 20030305, end: 20030507
  2. NAVELBINE [Concomitant]
  3. MUCOSOLVAN (AMBROXOL HYDROCHLORIDE) [Concomitant]
  4. LOXONIN (LOXOPROFEN SODIUM) [Concomitant]
  5. CYTOTEC [Concomitant]
  6. MAGNESIUM OXIDE [Concomitant]
  7. NOVAMIN (PROCHLORPERAZINE) [Concomitant]
  8. FENTANYL [Concomitant]

REACTIONS (7)
  - CARDIAC FAILURE [None]
  - EMPHYSEMA [None]
  - INTERSTITIAL LUNG DISEASE [None]
  - NAUSEA [None]
  - PNEUMONIA [None]
  - PNEUMONITIS [None]
  - RESPIRATORY FAILURE [None]
